FAERS Safety Report 15501495 (Version 1)
Quarter: 2018Q4

REPORT INFORMATION
  Report Type: Spontaneous
  Country: US (occurrence: US)
  Receive Date: 20181015
  Receipt Date: 20181015
  Transmission Date: 20190205
  Serious: No
  Sender: FDA-Public Use
  Company Number: US-AMGEN-USASP2018125143

PATIENT
  Age: 79 Year
  Sex: Female

DRUGS (1)
  1. BLINCYTO [Suspect]
     Active Substance: BLINATUMOMAB
     Indication: ACUTE LYMPHOCYTIC LEUKAEMIA
     Dosage: 5 MUG/M2, QD
     Route: 065
     Dates: start: 201809

REACTIONS (3)
  - Blood bilirubin increased [Unknown]
  - Headache [Unknown]
  - Transaminases increased [Unknown]

NARRATIVE: CASE EVENT DATE: 201809
